FAERS Safety Report 18370683 (Version 2)
Quarter: 2020Q4

REPORT INFORMATION
  Report Type: Report from Study
  Country: None (occurrence: TW)
  Receive Date: 20201012
  Receipt Date: 20201022
  Transmission Date: 20210114
  Serious: Yes (Hospitalization)
  Sender: FDA-Public Use
  Company Number: TW-ABBVIE-20K-153-3597291-00

PATIENT
  Age: 72 Year
  Sex: Male
  Weight: 54 kg

DRUGS (3)
  1. HUMIRA [Suspect]
     Active Substance: ADALIMUMAB
     Route: 058
     Dates: start: 20200925
  2. HUMIRA [Suspect]
     Active Substance: ADALIMUMAB
     Indication: RHEUMATOID ARTHRITIS
     Route: 058
     Dates: start: 20110415, end: 20180202
  3. HUMIRA [Suspect]
     Active Substance: ADALIMUMAB
     Indication: RHEUMATOID ARTHRITIS
     Route: 058
     Dates: start: 20180202

REACTIONS (9)
  - Pneumonia [Recovered/Resolved]
  - Spinal osteoarthritis [Unknown]
  - Atrial fibrillation [Recovered/Resolved]
  - Lung infiltration [Unknown]
  - Pleural disorder [Unknown]
  - Chronic obstructive pulmonary disease [Recovered/Resolved]
  - Cardiomegaly [Unknown]
  - Vertebral osteophyte [Unknown]
  - Alveolitis [Unknown]

NARRATIVE: CASE EVENT DATE: 20200904
